FAERS Safety Report 11405616 (Version 3)
Quarter: 2016Q1

REPORT INFORMATION
  Report Type: Spontaneous
  Country: US (occurrence: US)
  Receive Date: 20150821
  Receipt Date: 20160203
  Transmission Date: 20160525
  Serious: No
  Sender: FDA-Public Use
  Company Number: US-PFIZER INC-2015278422

PATIENT
  Age: 49 Year
  Sex: Female

DRUGS (14)
  1. ATORVASTATIN [Concomitant]
     Active Substance: ATORVASTATIN
     Dosage: UNK
  2. XELJANZ [Suspect]
     Active Substance: TOFACITINIB CITRATE
     Indication: RHEUMATOID ARTHRITIS
     Dosage: 5 MG, 2X/DAY
     Route: 048
     Dates: start: 20150612
  3. COUMADIN [Concomitant]
     Active Substance: WARFARIN SODIUM
     Dosage: 6 MG, UNK
  4. LOSARTAN POTASSIUM. [Concomitant]
     Active Substance: LOSARTAN POTASSIUM
     Dosage: 100 MG, UNK
  5. XARELTO [Concomitant]
     Active Substance: RIVAROXABAN
     Dosage: UNK
  6. DILTIAZEM [Concomitant]
     Active Substance: DILTIAZEM
     Dosage: UNK
  7. XELJANZ [Suspect]
     Active Substance: TOFACITINIB CITRATE
     Dosage: 5 MG, 2X/DAY
     Route: 048
     Dates: start: 20150612
  8. FOLIC ACID. [Concomitant]
     Active Substance: FOLIC ACID
     Dosage: 1 UNK, UNK
  9. VOLTAREN XR [Concomitant]
     Active Substance: DICLOFENAC SODIUM
     Dosage: 100 MG, UNK
  10. METHYLPREDNISOLONE. [Concomitant]
     Active Substance: METHYLPREDNISOLONE
     Dosage: UNK
  11. VICODIN [Concomitant]
     Active Substance: ACETAMINOPHEN\HYDROCODONE BITARTRATE
     Dosage: (HYDROCODONE BITARTRATE: 5MG/ PARACETAMOL: 300MG)
  12. ASPIRIN (E.C.) [Concomitant]
     Active Substance: ASPIRIN
     Dosage: 81 MG, UNK
  13. TEMAZEPAM. [Concomitant]
     Active Substance: TEMAZEPAM
     Dosage: UNK
  14. METHOTREXATE [Concomitant]
     Active Substance: METHOTREXATE
     Dosage: UNK

REACTIONS (5)
  - Acne [Recovering/Resolving]
  - Seborrhoea [Unknown]
  - Urinary tract infection [Recovering/Resolving]
  - Arthritis [Unknown]
  - Condition aggravated [Unknown]

NARRATIVE: CASE EVENT DATE: 201506
